FAERS Safety Report 10564966 (Version 1)
Quarter: 2014Q4

REPORT INFORMATION
  Report Type: Spontaneous
  Country: FR (occurrence: FR)
  Receive Date: 20141105
  Receipt Date: 20141105
  Transmission Date: 20150529
  Serious: Yes (Hospitalization)
  Sender: FDA-Public Use
  Company Number: FR-009507513-1410FRA014634

PATIENT
  Age: 66 Year
  Sex: Female
  Weight: 60.1 kg

DRUGS (11)
  1. STROMECTOL [Suspect]
     Active Substance: IVERMECTIN
     Indication: ACARODERMATITIS
     Dosage: 2 INTAKES WITHIN 10 DAYS OF INTERVAL
     Route: 048
     Dates: start: 20140911, end: 201409
  2. ASCABIOL [Suspect]
     Active Substance: BENZYL BENZOATE
     Dosage: UNK
     Route: 003
     Dates: start: 20140911, end: 20140917
  3. FEXOFENADINE [Suspect]
     Active Substance: FEXOFENADINE\FEXOFENADINE HYDROCHLORIDE
     Dosage: 180 MG, BID
     Route: 048
     Dates: start: 20140819, end: 20140909
  4. CORTANCYL [Concomitant]
     Active Substance: PREDNISONE
     Dosage: 7.5 MG, QD
     Route: 048
     Dates: start: 20140819
  5. IMUREL [Concomitant]
     Active Substance: AZATHIOPRINE SODIUM
     Dosage: 75 MG, QD
     Route: 048
     Dates: start: 20140718
  6. PRIMALAN [Suspect]
     Active Substance: MEQUITAZINE
     Dosage: 10 MG, QD
     Route: 048
     Dates: start: 20140826, end: 20140909
  7. INEXIUM (ESOMEPRAZOLE MAGNESIUM) [Concomitant]
     Active Substance: ESOMEPRAZOLE MAGNESIUM
     Dosage: 40 MG, QD
     Route: 048
     Dates: start: 20140819
  8. FLECAINE [Concomitant]
     Active Substance: FLECAINIDE
     Indication: TACHYCARDIA
     Dosage: 200 MG, QD
     Route: 048
     Dates: start: 20140307
  9. COZAAR [Concomitant]
     Active Substance: LOSARTAN POTASSIUM
     Indication: HYPERTENSION
     Dosage: 50 MG, BID
     Route: 048
  10. NEORAL [Concomitant]
     Active Substance: CYCLOSPORINE
     Dosage: 80 MG, BID
     Route: 048
     Dates: start: 20140819
  11. TRANSIPEG [Concomitant]
     Active Substance: POLYETHYLENE GLYCOL 3350
     Dosage: 1 DF, TID
     Dates: end: 201409

REACTIONS (3)
  - Liver disorder [Recovering/Resolving]
  - Cholestasis [Recovering/Resolving]
  - Hepatocellular injury [Recovered/Resolved]

NARRATIVE: CASE EVENT DATE: 20140911
